FAERS Safety Report 9683965 (Version 1)
Quarter: 2013Q4

REPORT INFORMATION
  Report Type: Spontaneous
  Country: DK (occurrence: DK)
  Receive Date: 20131112
  Receipt Date: 20131112
  Transmission Date: 20140711
  Serious: Yes (Life-Threatening, Hospitalization)
  Sender: FDA-Public Use
  Company Number: DK-TEVA-442703ISR

PATIENT
  Age: 61 Year
  Sex: Female

DRUGS (7)
  1. IBUMETIN [Concomitant]
  2. EMTHEXATE [Suspect]
     Indication: RHEUMATOID ARTHRITIS
     Dosage: STRENGTH: 2.5 MG
     Route: 048
     Dates: start: 20080423, end: 201305
  3. PLAQUENIL [Suspect]
     Indication: RHEUMATOID ARTHRITIS
     Route: 048
     Dates: start: 20100730, end: 201305
  4. FURIX [Concomitant]
  5. LERCATIO [Concomitant]
  6. SIMVASTATIN [Concomitant]
  7. PINEX [Concomitant]

REACTIONS (6)
  - Bone marrow toxicity [Recovering/Resolving]
  - Haemoglobin decreased [Recovering/Resolving]
  - Skin haemorrhage [Recovering/Resolving]
  - Mouth ulceration [Recovering/Resolving]
  - Anaemia [Recovering/Resolving]
  - Thrombocytopenia [Recovering/Resolving]
